FAERS Safety Report 6910260-0 (Version None)
Quarter: 2010Q3

REPORT INFORMATION
  Report Type: 
  Country: None (occurrence: None)
  Receive Date: 20100806
  Receipt Date: 20100729
  Transmission Date: 20110219
  Serious: Yes (Other)
  Sender: FDA-Public Use
  Company Number: IT-TYCO HEALTHCARE/MALLINCKRODT-T201001721

PATIENT
  Age: 71 Year
  Sex: Male

DRUGS (7)
  1. TECHNETIUM TC99M SESTAMIBI [Suspect]
     Indication: CARDIAC STRESS TEST
     Dosage: UNK
     Dates: start: 20090101, end: 20090101
  2. ULTRA-TECHNEKOW FM [Suspect]
     Dosage: UNK
     Dates: start: 20090101, end: 20090101
  3. RANITIDINE [Concomitant]
  4. ACETYLSALICYLIC ACID SRT [Concomitant]
  5. TICLOPIDINE HCL [Concomitant]
  6. VALSARTAN [Concomitant]
  7. DISOPROLOL [Concomitant]

REACTIONS (1)
  - DERMATITIS EXFOLIATIVE [None]
